FAERS Safety Report 18280105 (Version 2)
Quarter: 2020Q4

REPORT INFORMATION
  Report Type: Spontaneous
  Country: US (occurrence: US)
  Receive Date: 20200917
  Receipt Date: 20201027
  Transmission Date: 20210113
  Serious: Yes (Other)
  Sender: FDA-Public Use
  Company Number: US-ENDO PHARMACEUTICALS INC-2020-006110

PATIENT
  Sex: Female

DRUGS (10)
  1. PERCOCET [Suspect]
     Active Substance: ACETAMINOPHEN\OXYCODONE HYDROCHLORIDE
     Indication: SPINAL FRACTURE
     Dosage: UNK UNKNOWN, UNKNOWN
     Route: 065
     Dates: end: 2020
  2. NORCO [Suspect]
     Active Substance: ACETAMINOPHEN\HYDROCODONE BITARTRATE
     Indication: HIP ARTHROPLASTY
  3. PERCODAN [Suspect]
     Active Substance: ASPIRIN\OXYCODONE HYDROCHLORIDE
     Indication: HIP ARTHROPLASTY
  4. HYDROCODONE [Suspect]
     Active Substance: HYDROCODONE
     Indication: HIP ARTHROPLASTY
  5. PERCOCET [Suspect]
     Active Substance: ACETAMINOPHEN\OXYCODONE HYDROCHLORIDE
     Indication: HIP ARTHROPLASTY
  6. OXYCODONE [Suspect]
     Active Substance: OXYCODONE
     Indication: SPINAL FRACTURE
     Dosage: UNK UNKNOWN, UNKNOWN
     Route: 065
     Dates: end: 2020
  7. PERCODAN [Suspect]
     Active Substance: ASPIRIN\OXYCODONE HYDROCHLORIDE
     Indication: SPINAL FRACTURE
     Dosage: UNK UNKNOWN, UNKNOWN
     Route: 065
     Dates: end: 2020
  8. HYDROCODONE [Suspect]
     Active Substance: HYDROCODONE
     Indication: SPINAL FRACTURE
     Dosage: UNK UNKNOWN, UNKNOWN
     Route: 065
     Dates: end: 2020
  9. OXYCODONE [Suspect]
     Active Substance: OXYCODONE
     Indication: HIP ARTHROPLASTY
  10. NORCO [Suspect]
     Active Substance: ACETAMINOPHEN\HYDROCODONE BITARTRATE
     Indication: SPINAL FRACTURE
     Dosage: UNK UNKNOWN, UNKNOWN
     Route: 065
     Dates: end: 2020

REACTIONS (7)
  - Fall [Unknown]
  - Off label use [Unknown]
  - Drug dependence [Unknown]
  - Surgery [Unknown]
  - Confusional state [Unknown]
  - Mental impairment [Unknown]
  - Injury [Unknown]
